FAERS Safety Report 8599678-0 (Version None)
Quarter: 2012Q3

REPORT INFORMATION
  Report Type: 
  Country: None (occurrence: None)
  Receive Date: 20120816
  Receipt Date: 20120806
  Transmission Date: 20120928
  Serious: Yes (Other)
  Sender: FDA-Public Use
  Company Number: IT-FRI-1000037807

PATIENT
  Sex: Male

DRUGS (7)
  1. PERIDON [Concomitant]
  2. DONEPEZIL HYDRCHLORIDE [Suspect]
     Indication: DEMENTIA ALZHEIMER'S TYPE
     Dosage: 5 MG
     Route: 048
     Dates: start: 20110505, end: 20120504
  3. PANTOPRAZOLE [Concomitant]
  4. ESCITALOPRAM OXALATE [Suspect]
     Indication: PRODUCT USED FOR UNKNOWN INDICATION
     Dosage: 1 DF
     Route: 048
     Dates: start: 20110505, end: 20120504
  5. ALLOPURINOL [Concomitant]
  6. ESAPENT [Concomitant]
  7. ASPIRIN [Concomitant]

REACTIONS (1)
  - PRESYNCOPE [None]
